FAERS Safety Report 10040613 (Version 1)
Quarter: 2014Q1

REPORT INFORMATION
  Report Type: Spontaneous
  Country: US (occurrence: US)
  Receive Date: 20140327
  Receipt Date: 20140327
  Transmission Date: 20141002
  Serious: No
  Sender: FDA-Public Use
  Company Number: US-GLAXOSMITHKLINE-A1053237A

PATIENT
  Age: 31 Year
  Sex: Female

DRUGS (3)
  1. MEKINIST [Suspect]
     Indication: BRAIN NEOPLASM MALIGNANT
     Dosage: 2MG PER DAY
     Route: 048
     Dates: start: 2013
  2. TAFINLAR [Suspect]
     Indication: BRAIN NEOPLASM MALIGNANT
     Dosage: 75MG TWICE PER DAY
     Route: 048
     Dates: start: 2013
  3. MORNING AFTER PILL [Concomitant]

REACTIONS (1)
  - Drug interaction [Recovered/Resolved]
